FAERS Safety Report 7655691-9 (Version None)
Quarter: 2011Q3

REPORT INFORMATION
  Report Type: 
  Country: None (occurrence: None)
  Receive Date: 20110801
  Receipt Date: 20110715
  Transmission Date: 20111222
  Serious: Yes (Hospitalization, Other)
  Sender: FDA-Public Use
  Company Number: 2011MA008950

PATIENT
  Age: 63 Year
  Sex: Female

DRUGS (5)
  1. CARBAMAZEPINE [Suspect]
     Indication: CONVULSION PROPHYLAXIS
     Dosage: 400 MG;QD
     Dates: start: 20090201, end: 20090301
  2. PERINDOPRIL [Concomitant]
  3. METFORMIN HCL [Concomitant]
  4. GILBENCLAMIDE [Concomitant]
  5. EZETIMIBE [Concomitant]

REACTIONS (5)
  - SYNCOPE [None]
  - BLOOD GLUCOSE INCREASED [None]
  - DRUG RASH WITH EOSINOPHILIA AND SYSTEMIC SYMPTOMS [None]
  - HEPATOSPLENOMEGALY [None]
  - SKIN TEST POSITIVE [None]
